FAERS Safety Report 14119512 (Version 1)
Quarter: 2017Q4

REPORT INFORMATION
  Report Type: Spontaneous
  Country: US (occurrence: US)
  Receive Date: 20171024
  Receipt Date: 20171024
  Transmission Date: 20180321
  Serious: Yes (Death, Other)
  Sender: FDA-Public Use
  Company Number: US-ALVOGEN-2017-ALVOGEN-093775

PATIENT
  Age: 26 Year
  Sex: Male

DRUGS (3)
  1. CISPLATIN. [Suspect]
     Active Substance: CISPLATIN
     Indication: THYMIC CANCER METASTATIC
  2. DOXORUBICIN [Suspect]
     Active Substance: DOXORUBICIN
     Indication: THYMIC CANCER METASTATIC
  3. CYCLOPHOSPHAMIDE. [Suspect]
     Active Substance: CYCLOPHOSPHAMIDE
     Indication: THYMIC CANCER METASTATIC

REACTIONS (9)
  - Encephalopathy [Unknown]
  - Hypercalcaemia [Unknown]
  - Pulmonary embolism [Unknown]
  - Sepsis [Unknown]
  - Pain [Unknown]
  - Pathological fracture [Unknown]
  - Respiratory failure [Fatal]
  - Delirium [Unknown]
  - Pyrexia [Unknown]
